FAERS Safety Report 6755828-X (Version None)
Quarter: 2010Q2

REPORT INFORMATION
  Report Type: 
  Country: None (occurrence: None)
  Receive Date: 20100604
  Receipt Date: 20100527
  Transmission Date: 20101027
  Serious: Yes (Hospitalization, Other)
  Sender: FDA-Public Use
  Company Number: JP-BAYER-201016613GPV

PATIENT
  Age: 80 Year
  Sex: Male
  Weight: 63 kg

DRUGS (15)
  1. SORAFENIB [Suspect]
     Indication: HEPATIC NEOPLASM MALIGNANT
     Dosage: TOTAL DAILY DOSE: 800 MG  UNIT DOSE: 200 MG
     Route: 048
     Dates: start: 20100122, end: 20100205
  2. GLUCOBAY [Suspect]
     Indication: DIABETES MELLITUS
  3. AMARYL [Concomitant]
     Indication: DIABETES MELLITUS
  4. PREMINENT (LOSARTAN POTASSIUM W/HYDROCHLOROTHIAZIDE) [Concomitant]
     Indication: HYPERTENSION
     Dates: start: 20100205, end: 20100207
  5. CALBLOCK [Concomitant]
     Indication: HYPERTENSION
  6. HARNAL [Concomitant]
     Indication: BENIGN PROSTATIC HYPERPLASIA
  7. KINEDAK [Concomitant]
     Indication: HYPERTENSION
  8. LASIX [Concomitant]
     Indication: BLOOD ALBUMIN DECREASED
     Dates: start: 20100205, end: 20100207
  9. ALDACTONE [Concomitant]
     Indication: BLOOD ALBUMIN DECREASED
     Dates: start: 20100206, end: 20100207
  10. XYLOCAINE [Concomitant]
     Indication: ORAL MUCOSA EROSION
     Dates: start: 20100205, end: 20100207
  11. AZUNOL [Concomitant]
     Indication: ORAL MUCOSA EROSION
     Dates: start: 20100205, end: 20100207
  12. FRANDOL [Concomitant]
     Indication: BENIGN PROSTATIC HYPERPLASIA
     Dates: start: 20100207, end: 20100207
  13. ALBUMIN (HUMAN) [Concomitant]
     Indication: HYPOALBUMINAEMIA
     Dates: start: 20100205, end: 20100205
  14. EPALRESTAT [Concomitant]
     Indication: HYPERTENSION
     Dates: start: 20060123
  15. ASPIRIN [Concomitant]
     Indication: EPILEPSY
     Route: 048
     Dates: start: 20100407

REACTIONS (5)
  - DEHYDRATION [None]
  - HYPOALBUMINAEMIA [None]
  - HYPOGLYCAEMIA [None]
  - NEPHROTIC SYNDROME [None]
  - RENAL TUBULAR NECROSIS [None]
